FAERS Safety Report 4743690-6 (Version None)
Quarter: 2005Q3

REPORT INFORMATION
  Report Type: 
  Country: None (occurrence: None)
  Receive Date: 20050812
  Receipt Date: 20050808
  Transmission Date: 20060218
  Serious: Yes (Hospitalization)
  Sender: FDA-Public Use
  Company Number: US-SANOFI-SYNTHELABO-A03200502427

PATIENT
  Sex: Male

DRUGS (2)
  1. ELOXATIN [Suspect]
     Indication: BILE DUCT CANCER
     Route: 025
     Dates: start: 20050802, end: 20050802
  2. GELFOAM [Concomitant]
     Dosage: UNK
     Route: 065

REACTIONS (1)
  - GRAND MAL CONVULSION [None]
